FAERS Safety Report 17326291 (Version 1)
Quarter: 2020Q1

REPORT INFORMATION
  Report Type: Spontaneous
  Country: SE (occurrence: SE)
  Receive Date: 20200127
  Receipt Date: 20200127
  Transmission Date: 20200409
  Serious: Yes (Hospitalization)
  Sender: FDA-Public Use
  Company Number: SE-MYLANLABS-2020M1007942

PATIENT
  Age: 13 Year
  Sex: Male

DRUGS (1)
  1. AZATHIOPRINE. [Suspect]
     Active Substance: AZATHIOPRINE
     Indication: COLITIS ULCERATIVE
     Dosage: UNK (100 MG PER DAG)
     Route: 048
     Dates: start: 20190308, end: 20191010

REACTIONS (3)
  - Liver disorder [Not Recovered/Not Resolved]
  - Neutropenia [Not Recovered/Not Resolved]
  - Immunosuppressant drug level increased [Not Recovered/Not Resolved]

NARRATIVE: CASE EVENT DATE: 201910
